FAERS Safety Report 9651855 (Version 2)
Quarter: 2013Q4

REPORT INFORMATION
  Report Type: Spontaneous
  Country: IT (occurrence: IT)
  Receive Date: 20131029
  Receipt Date: 20131029
  Transmission Date: 20140711
  Serious: Yes (Death, Hospitalization)
  Sender: FDA-Public Use
  Company Number: IT-BAYER-2013-105875

PATIENT
  Age: 82 Year
  Sex: Male

DRUGS (13)
  1. CIPROXIN 500 MG FILM-COATED TABLETS [Suspect]
     Indication: PRODUCT USED FOR UNKNOWN INDICATION
     Dosage: 1000 MG, QD
     Route: 048
     Dates: start: 20130601, end: 20130606
  2. COUMADIN [Interacting]
     Indication: ATRIAL FIBRILLATION
     Dosage: 5 MG, PRN
     Route: 048
     Dates: start: 20130101, end: 20130606
  3. LEVETIRACETAM [Concomitant]
     Indication: EPILEPSY
     Dosage: 500 MG, QD
     Route: 048
     Dates: start: 20130528, end: 20130606
  4. MIRTAZAPINE [Concomitant]
     Dosage: 30 MG, QD
     Route: 048
     Dates: start: 20130606
  5. RATACAND [Concomitant]
     Indication: HYPERTENSION
     Dosage: 8 MG, QD
     Route: 048
     Dates: start: 20130606
  6. LASIX [Concomitant]
     Indication: HYPERTENSION
     Dosage: 50 MG, QD
     Route: 048
     Dates: start: 20130606
  7. PRADIF [Concomitant]
     Indication: BENIGN PROSTATIC HYPERPLASIA
     Dosage: 0.4 MG, QD
     Route: 048
     Dates: start: 20130606
  8. OMEPRAZEN [Concomitant]
     Indication: PROPHYLAXIS AGAINST GASTROINTESTINAL ULCER
     Dosage: DAILY DOSE 40 MG
     Route: 048
     Dates: start: 20130606
  9. MUTABON [Concomitant]
     Dosage: 1 DF, QD
     Route: 048
     Dates: start: 20130606
  10. SERENASE [HALOPERIDOL] [Concomitant]
     Dosage: 7 GTT, QD
     Route: 048
     Dates: start: 20130606
  11. NEBIVOLOL [Concomitant]
     Dosage: 2.5 MG, UNK
     Route: 048
     Dates: start: 20130606
  12. LANOXIN [Concomitant]
     Dosage: 1 DF, UNK
     Route: 048
     Dates: start: 20130606
  13. KCL-RETARD [Concomitant]
     Dosage: 600 MG, UNK
     Route: 048
     Dates: start: 20130606

REACTIONS (2)
  - International normalised ratio increased [Fatal]
  - Drug interaction [Fatal]
